FAERS Safety Report 10519142 (Version 1)
Quarter: 2014Q4

REPORT INFORMATION
  Report Type: Spontaneous
  Country: US (occurrence: US)
  Receive Date: 20141015
  Receipt Date: 20141015
  Transmission Date: 20150528
  Serious: Yes (Disabling)
  Sender: FDA-Public Use
  Company Number: US-BAYER-2014-149891

PATIENT
  Age: 31 Year
  Sex: Female

DRUGS (1)
  1. MIRENA [Suspect]
     Active Substance: LEVONORGESTREL
     Indication: CONTRACEPTION
     Dosage: 20 MCG/24HR, CONT
     Route: 015
     Dates: start: 201205, end: 201409

REACTIONS (19)
  - Migraine [Recovering/Resolving]
  - Abdominal pain [Recovering/Resolving]
  - Disorientation [Recovering/Resolving]
  - Impaired work ability [Recovering/Resolving]
  - Lymphadenopathy [Recovering/Resolving]
  - Dysgeusia [Recovering/Resolving]
  - Fatigue [Recovering/Resolving]
  - Confusional state [Recovering/Resolving]
  - Hepatosplenomegaly [Recovering/Resolving]
  - Movement disorder [Recovering/Resolving]
  - Menstrual disorder [Recovering/Resolving]
  - Chest pain [Recovering/Resolving]
  - Nausea [Recovering/Resolving]
  - Red blood cell count increased [Recovering/Resolving]
  - Diplopia [Recovering/Resolving]
  - Anxiety [Recovering/Resolving]
  - Medical device pain [Recovering/Resolving]
  - Pain in extremity [Recovering/Resolving]
  - Blood glucose increased [Recovering/Resolving]
